FAERS Safety Report 19084606 (Version 1)
Quarter: 2021Q2

REPORT INFORMATION
  Report Type: Spontaneous
  Country: US (occurrence: US)
  Receive Date: 20210401
  Receipt Date: 20210401
  Transmission Date: 20210717
  Serious: No
  Sender: FDA-Public Use
  Company Number: US-IBSA PHARMA-2019-IBS-00694

PATIENT
  Age: 70 Year

DRUGS (3)
  1. FLECTOR [Suspect]
     Active Substance: DICLOFENAC EPOLAMINE
     Indication: INTERVERTEBRAL DISC DEGENERATION
  2. FLECTOR [Suspect]
     Active Substance: DICLOFENAC EPOLAMINE
     Indication: INFLAMMATION
  3. FLECTOR [Suspect]
     Active Substance: DICLOFENAC EPOLAMINE
     Indication: PAIN

REACTIONS (3)
  - Confusional state [Unknown]
  - Therapeutic product effect incomplete [Unknown]
  - Irritability [Unknown]
